FAERS Safety Report 20634867 (Version 1)
Quarter: 2022Q1

REPORT INFORMATION
  Report Type: Spontaneous
  Country: DE (occurrence: None)
  Receive Date: 20220325
  Receipt Date: 20220325
  Transmission Date: 20220423
  Serious: Yes (Other)
  Sender: FDA-Public Use
  Company Number: DE-ROCHE-3053246

PATIENT
  Age: 75 Year
  Sex: Male

DRUGS (2)
  1. TECENTRIQ [Suspect]
     Active Substance: ATEZOLIZUMAB
     Indication: Hepatocellular carcinoma
     Route: 065
  2. BEVACIZUMAB [Suspect]
     Active Substance: BEVACIZUMAB
     Indication: Hepatocellular carcinoma
     Route: 065

REACTIONS (11)
  - Osteoarthritis [Unknown]
  - Reversible cerebral vasoconstriction syndrome [Unknown]
  - Hypertension [Unknown]
  - Pyrexia [Unknown]
  - Renal failure [Unknown]
  - Encephalopathy [Unknown]
  - Nephritis [Unknown]
  - Sepsis [Unknown]
  - Pyelonephritis [Unknown]
  - Escherichia infection [Unknown]
  - Septic encephalopathy [Unknown]
